FAERS Safety Report 5022767-4 (Version None)
Quarter: 2006Q2

REPORT INFORMATION
  Report Type: 
  Country: None (occurrence: None)
  Receive Date: 20060609
  Receipt Date: 20060606
  Transmission Date: 20061013
  Serious: Yes (Other)
  Sender: FDA-Public Use
  Company Number: CH-MERCK-0606CHE00002

PATIENT
  Sex: Female

DRUGS (2)
  1. FOSAMAX [Suspect]
     Route: 048
  2. RISEDRONATE SODIUM [Suspect]
     Route: 048

REACTIONS (2)
  - CROSS SENSITIVITY REACTION [None]
  - OESOPHAGITIS [None]
